FAERS Safety Report 23040895 (Version 2)
Quarter: 2023Q4

REPORT INFORMATION
  Report Type: Other
  Country: US (occurrence: None)
  Receive Date: 20231006
  Receipt Date: 20231011
  Transmission Date: 20240109
  Serious: Yes (Other)
  Sender: FDA-Public Use
  Company Number: US-ROCHE-2808625

PATIENT
  Sex: Female
  Weight: 113.5 kg

DRUGS (12)
  1. OCREVUS [Suspect]
     Active Substance: OCRELIZUMAB
     Indication: Relapsing-remitting multiple sclerosis
     Route: 042
     Dates: start: 2018
  2. ESCITALOPRAM OXALATE [Suspect]
     Active Substance: ESCITALOPRAM OXALATE
     Indication: Depression
     Route: 065
  3. ESCITALOPRAM OXALATE [Suspect]
     Active Substance: ESCITALOPRAM OXALATE
     Indication: Generalised anxiety disorder
  4. DESIPRAMINE [Suspect]
     Active Substance: DESIPRAMINE
     Indication: Depression
     Route: 065
  5. DESIPRAMINE [Suspect]
     Active Substance: DESIPRAMINE
     Indication: Generalised anxiety disorder
  6. GABAPENTIN [Concomitant]
     Active Substance: GABAPENTIN
     Route: 048
     Dates: start: 2016
  7. GABAPENTIN [Concomitant]
     Active Substance: GABAPENTIN
     Route: 048
  8. FAMOTIDINE [Concomitant]
     Active Substance: FAMOTIDINE
     Indication: Gastrooesophageal reflux disease
     Route: 048
     Dates: start: 2009
  9. SODIUM OXYBATE [Concomitant]
     Active Substance: SODIUM OXYBATE
     Indication: Narcolepsy
     Route: 048
     Dates: start: 2001
  10. MODAFINIL [Concomitant]
     Active Substance: MODAFINIL
     Indication: Narcolepsy
     Route: 048
     Dates: start: 2000
  11. VITAMIN D3 [Concomitant]
     Active Substance: CHOLECALCIFEROL
     Route: 048
     Dates: start: 2015
  12. IMIPRAMINE [Concomitant]
     Active Substance: IMIPRAMINE
     Indication: Depression

REACTIONS (22)
  - Respiratory tract infection [Unknown]
  - Multiple sclerosis pseudo relapse [Recovered/Resolved]
  - Weight increased [Not Recovered/Not Resolved]
  - Malaise [Recovered/Resolved]
  - Pruritus [Recovered/Resolved]
  - Flushing [Recovered/Resolved]
  - Nausea [Recovered/Resolved]
  - Dry mouth [Recovered/Resolved]
  - Thirst [Recovered/Resolved]
  - Chest discomfort [Recovered/Resolved]
  - Lung disorder [Recovered/Resolved]
  - Erythema [Recovered/Resolved]
  - Skin burning sensation [Recovered/Resolved]
  - Dyspnoea [Recovered/Resolved]
  - Somnolence [Recovering/Resolving]
  - Infection [Unknown]
  - Rash vesicular [Unknown]
  - Dermatitis [Recovered/Resolved]
  - Rosacea [Recovered/Resolved]
  - Irritable bowel syndrome [Unknown]
  - Fatigue [Unknown]
  - Influenza [Unknown]
